FAERS Safety Report 4906238-9 (Version None)
Quarter: 2006Q1

REPORT INFORMATION
  Report Type: 
  Country: None (occurrence: None)
  Receive Date: 20060207
  Receipt Date: 20060126
  Transmission Date: 20060701
  Serious: Yes (Other)
  Sender: FDA-Public Use
  Company Number: 2006014543

PATIENT
  Sex: Female
  Weight: 60 kg

DRUGS (3)
  1. CABERGOLINE [Suspect]
     Indication: PITUITARY TUMOUR BENIGN
     Dosage: 1 GRAM, 3 DAYS A WEEK), ORAL
     Route: 048
     Dates: start: 19990101, end: 20060106
  2. CABERGOLINE [Suspect]
     Indication: PROLACTINOMA
     Dosage: 1 GRAM, 3 DAYS A WEEK), ORAL
     Route: 048
     Dates: start: 19990101, end: 20060106
  3. CODEINE PHOSPHATE (CODEINE PHOSPHATE) [Concomitant]

REACTIONS (1)
  - ALOPECIA [None]
